FAERS Safety Report 7952905-2 (Version None)
Quarter: 2011Q4

REPORT INFORMATION
  Report Type: 
  Country: None (occurrence: None)
  Receive Date: 20111201
  Receipt Date: 20111122
  Transmission Date: 20120403
  Serious: Yes (Hospitalization, Other)
  Sender: FDA-Public Use
  Company Number: US-ASTRAZENECA-2010SE58758

PATIENT
  Age: 52 Year
  Sex: Female

DRUGS (4)
  1. NEXIUM [Suspect]
     Route: 048
  2. IV STEROIDS [Suspect]
     Route: 042
  3. TOPROL-XL [Suspect]
     Route: 048
  4. IV PROTONIX [Concomitant]

REACTIONS (12)
  - DIARRHOEA [None]
  - GASTROINTESTINAL HAEMORRHAGE [None]
  - BEDRIDDEN [None]
  - HAEMOPTYSIS [None]
  - HYPOTENSION [None]
  - HAEMATOCHEZIA [None]
  - DEHYDRATION [None]
  - HAEMORRHAGE [None]
  - HAEMATEMESIS [None]
  - BLOOD POTASSIUM DECREASED [None]
  - MALAISE [None]
  - ASTHMA [None]
